FAERS Safety Report 4472815-5 (Version None)
Quarter: 2004Q4

REPORT INFORMATION
  Report Type: 
  Country: None (occurrence: None)
  Receive Date: 20041008
  Receipt Date: 20041004
  Transmission Date: 20050328
  Serious: Yes (Other)
  Sender: FDA-Public Use
  Company Number: 2004-10-0023

PATIENT
  Age: 38 Year
  Sex: Female

DRUGS (3)
  1. CLARINEX [Suspect]
     Indication: SUICIDE ATTEMPT
     Dosage: 100 MG ORAL
     Route: 048
     Dates: start: 20041003, end: 20041003
  2. XIMOVAN (ZOPICLONE) TABLETS [Suspect]
     Indication: SUICIDE ATTEMPT
     Dosage: 150 MG ORAL
     Route: 048
     Dates: start: 20041003, end: 20041003
  3. DIAZEPAM [Suspect]
     Indication: SUICIDE ATTEMPT
     Dosage: 100 MG ORAL
     Route: 048
     Dates: start: 20041003, end: 20041003

REACTIONS (3)
  - BLOOD ALCOHOL INCREASED [None]
  - MULTIPLE DRUG OVERDOSE INTENTIONAL [None]
  - SUICIDE ATTEMPT [None]
